FAERS Safety Report 5532372-9 (Version None)
Quarter: 2007Q4

REPORT INFORMATION
  Report Type: 
  Country: None (occurrence: None)
  Receive Date: 20071128
  Receipt Date: 20071116
  Transmission Date: 20080405
  Serious: Yes (Hospitalization)
  Sender: FDA-Public Use
  Company Number: CFNTY-177

PATIENT
  Age: 39 Year
  Sex: Male

DRUGS (2)
  1. MEIACT MS TABLET (CEFDITOREN PIVOXIL) [Suspect]
     Indication: NASOPHARYNGITIS
     Dosage: 300 MG, PO
     Route: 048
     Dates: start: 20071110, end: 20071112
  2. CONFATANIN (LOXOPROFEN SODIUM HYDRATE) [Suspect]
     Indication: NASOPHARYNGITIS
     Dosage: 180 MG/DAY, PO
     Route: 048
     Dates: start: 20071110, end: 20071112

REACTIONS (4)
  - ERYTHEMA [None]
  - GAIT DISTURBANCE [None]
  - PAIN [None]
  - PURPURA [None]
